FAERS Safety Report 10563242 (Version 2)
Quarter: 2014Q4

REPORT INFORMATION
  Report Type: Spontaneous
  Country: IL (occurrence: IL)
  Receive Date: 20141104
  Receipt Date: 20141111
  Transmission Date: 20150529
  Serious: Yes (Life-Threatening, Other)
  Sender: FDA-Public Use
  Company Number: IL-GLAXOSMITHKLINE-IL2014GSK010586

PATIENT
  Age: 13 Year
  Sex: Male
  Weight: 35 kg

DRUGS (1)
  1. RELVAR ELLIPTA [Suspect]
     Active Substance: FLUTICASONE FUROATE\VILANTEROL TRIFENATATE
     Indication: ASTHMA
     Dosage: 184 UNK, UNK
     Route: 055

REACTIONS (4)
  - Anaphylactic shock [Recovered/Resolved]
  - Face oedema [Recovered/Resolved]
  - Laryngeal oedema [Recovered/Resolved]
  - Respiratory disorder [Recovered/Resolved]
